FAERS Safety Report 8604813-1 (Version None)
Quarter: 2012Q3

REPORT INFORMATION
  Report Type: 
  Country: None (occurrence: None)
  Receive Date: 20120820
  Receipt Date: 20120816
  Transmission Date: 20120928
  Serious: No
  Sender: FDA-Public Use
  Company Number: US-JNJFOC-20120710254

PATIENT
  Sex: Female
  Weight: 68.04 kg

DRUGS (20)
  1. DURAGESIC-100 [Suspect]
     Indication: BACK PAIN
     Route: 062
     Dates: start: 20070101, end: 20120101
  2. OXYCODONE HCL [Suspect]
     Indication: INTERVERTEBRAL DISC DEGENERATION
     Dosage: 100MG/TABLET/50MG/EVERY 4-6 HOURS
     Route: 048
     Dates: start: 20120101, end: 20120101
  3. METHOTREXATE [Suspect]
     Indication: BACK PAIN
     Dosage: 100MG/TABLET/50MG/EVERY 4-6 HOURS
     Route: 048
     Dates: start: 20120101, end: 20120101
  4. TRAMADOL HCL [Suspect]
     Indication: INTERVERTEBRAL DISC DEGENERATION
     Dosage: 100MG/TABLET/50MG/EVERY 4-6 HOURS
     Route: 048
     Dates: start: 20070101
  5. METHOTREXATE [Suspect]
     Indication: INTERVERTEBRAL DISC DEGENERATION
     Dosage: 100MG/TABLET/50MG/EVERY 4-6 HOURS
     Route: 048
     Dates: start: 20120101, end: 20120101
  6. PERCOCET [Suspect]
     Indication: FIBROMYALGIA
     Dosage: 100MG/TABLET/50MG/EVERY 4-6 HOURS
     Route: 048
     Dates: start: 20120101, end: 20120101
  7. PERCOCET [Suspect]
     Indication: BACK PAIN
     Dosage: 100MG/TABLET/50MG/EVERY 4-6 HOURS
     Route: 048
     Dates: start: 20120101, end: 20120101
  8. TRAMADOL HCL [Suspect]
     Indication: BACK PAIN
     Dosage: 100MG/TABLET/50MG/EVERY 4-6 HOURS
     Route: 048
     Dates: start: 20070101
  9. OXYCODONE HCL [Suspect]
     Indication: FIBROMYALGIA
     Dosage: 100MG/TABLET/50MG/EVERY 4-6 HOURS
     Route: 048
     Dates: start: 20120101, end: 20120101
  10. DURAGESIC-100 [Suspect]
     Indication: FIBROMYALGIA
     Route: 062
     Dates: start: 20070101, end: 20120101
  11. DURAGESIC-100 [Suspect]
     Indication: INTERVERTEBRAL DISC DEGENERATION
     Route: 062
     Dates: start: 20070101, end: 20120101
  12. OXYCODONE HCL [Suspect]
     Indication: BACK PAIN
     Dosage: 100MG/TABLET/50MG/EVERY 4-6 HOURS
     Route: 048
     Dates: start: 20120101, end: 20120101
  13. DURAGESIC-100 [Suspect]
     Indication: RHEUMATOID ARTHRITIS
     Route: 062
     Dates: start: 20070101, end: 20120101
  14. TRAMADOL HCL [Suspect]
     Indication: RHEUMATOID ARTHRITIS
     Dosage: 100MG/TABLET/50MG/EVERY 4-6 HOURS
     Route: 048
     Dates: start: 20070101
  15. TRAMADOL HCL [Suspect]
     Indication: FIBROMYALGIA
     Dosage: 100MG/TABLET/50MG/EVERY 4-6 HOURS
     Route: 048
     Dates: start: 20070101
  16. PERCOCET [Suspect]
     Indication: INTERVERTEBRAL DISC DEGENERATION
     Dosage: 100MG/TABLET/50MG/EVERY 4-6 HOURS
     Route: 048
     Dates: start: 20120101, end: 20120101
  17. METHOTREXATE [Suspect]
     Indication: RHEUMATOID ARTHRITIS
     Dosage: 100MG/TABLET/50MG/EVERY 4-6 HOURS
     Route: 048
     Dates: start: 20120101, end: 20120101
  18. PERCOCET [Suspect]
     Indication: RHEUMATOID ARTHRITIS
     Dosage: 100MG/TABLET/50MG/EVERY 4-6 HOURS
     Route: 048
     Dates: start: 20120101, end: 20120101
  19. OXYCODONE HCL [Suspect]
     Indication: RHEUMATOID ARTHRITIS
     Dosage: 100MG/TABLET/50MG/EVERY 4-6 HOURS
     Route: 048
     Dates: start: 20120101, end: 20120101
  20. METHOTREXATE [Suspect]
     Indication: FIBROMYALGIA
     Dosage: 100MG/TABLET/50MG/EVERY 4-6 HOURS
     Route: 048
     Dates: start: 20120101, end: 20120101

REACTIONS (2)
  - DRUG INEFFECTIVE [None]
  - INAPPROPRIATE SCHEDULE OF DRUG ADMINISTRATION [None]
